FAERS Safety Report 17772877 (Version 3)
Quarter: 2020Q3

REPORT INFORMATION
  Report Type: Spontaneous
  Country: DE (occurrence: DE)
  Receive Date: 20200512
  Receipt Date: 20200911
  Transmission Date: 20201102
  Serious: Yes (Hospitalization, Other)
  Sender: FDA-Public Use
  Company Number: NVSC2020DE128782

PATIENT
  Sex: Female

DRUGS (8)
  1. GLIVEC [Suspect]
     Active Substance: IMATINIB MESYLATE
     Indication: CHRONIC MYELOID LEUKAEMIA
     Dosage: 400 MG, QD (ON 7 DAYS PER WEEK)
     Route: 065
     Dates: start: 20180613, end: 20180714
  2. DASATINIB. [Suspect]
     Active Substance: DASATINIB
     Dosage: 80 MG, QD (7 DAYS PER WEEK)
     Route: 065
     Dates: start: 20190116, end: 20190315
  3. HYDROXYUREA. [Suspect]
     Active Substance: HYDROXYUREA
     Indication: CHRONIC MYELOID LEUKAEMIA
     Dosage: UNK
     Route: 065
     Dates: start: 20180529
  4. DASATINIB. [Suspect]
     Active Substance: DASATINIB
     Dosage: 50 MG, QD (7 DAYS PER WEEK)
     Route: 065
     Dates: start: 20180919, end: 20181115
  5. DASATINIB. [Suspect]
     Active Substance: DASATINIB
     Dosage: 100 MG, QD (7 DAYS PER WEEK)
     Route: 065
     Dates: start: 20190316, end: 20190721
  6. DASATINIB. [Suspect]
     Active Substance: DASATINIB
     Indication: CHRONIC MYELOID LEUKAEMIA
     Dosage: 50 MG, QD (5 DAYS PER WEEK)
     Route: 065
     Dates: start: 20180817, end: 20180918
  7. DASATINIB. [Suspect]
     Active Substance: DASATINIB
     Dosage: 70 MG, QD (7 DAYS PER WEEK)
     Route: 065
     Dates: start: 20181116, end: 20190115
  8. DASATINIB. [Suspect]
     Active Substance: DASATINIB
     Dosage: 100 MG, QD (7 DAYS PER WEEK)
     Route: 065
     Dates: start: 20190722

REACTIONS (6)
  - Nasopharyngitis [Recovered/Resolved]
  - Rash [Recovered/Resolved]
  - Basal cell carcinoma [Recovered/Resolved]
  - Back pain [Recovered/Resolved]
  - Pancytopenia [Recovered/Resolved]
  - Gastrointestinal haemorrhage [Recovered/Resolved]

NARRATIVE: CASE EVENT DATE: 20180718
